FAERS Safety Report 5222365-3 (Version None)
Quarter: 2007Q1

REPORT INFORMATION
  Report Type: 
  Country: None (occurrence: None)
  Receive Date: 20070124
  Receipt Date: 20070108
  Transmission Date: 20070707
  Serious: Yes (Hospitalization)
  Sender: FDA-Public Use
  Company Number: JPI-P-000276

PATIENT
  Age: 58 Year
  Sex: Female

DRUGS (8)
  1. XYREM [Suspect]
     Indication: CHRONIC FATIGUE SYNDROME
     Dosage: 3 GM (1.5 GM, 2 IN 1 D), ORAL; SEE IMAGE
     Route: 048
     Dates: start: 20061201
  2. XYREM [Suspect]
     Indication: FIBROMYALGIA
     Dosage: 3 GM (1.5 GM, 2 IN 1 D), ORAL; SEE IMAGE
     Route: 048
     Dates: start: 20061201
  3. XYREM [Suspect]
     Indication: NARCOLEPSY
     Dosage: 3 GM (1.5 GM, 2 IN 1 D), ORAL; SEE IMAGE
     Route: 048
     Dates: start: 20061201
  4. XYREM [Suspect]
     Indication: SLEEP DISORDER
     Dosage: 3 GM (1.5 GM, 2 IN 1 D), ORAL; SEE IMAGE
     Route: 048
     Dates: start: 20061201
  5. XYREM [Suspect]
     Indication: CHRONIC FATIGUE SYNDROME
     Dosage: 3 GM (1.5 GM, 2 IN 1 D), ORAL; SEE IMAGE
     Route: 048
     Dates: start: 20061201
  6. XYREM [Suspect]
     Indication: FIBROMYALGIA
     Dosage: 3 GM (1.5 GM, 2 IN 1 D), ORAL; SEE IMAGE
     Route: 048
     Dates: start: 20061201
  7. XYREM [Suspect]
     Indication: NARCOLEPSY
     Dosage: 3 GM (1.5 GM, 2 IN 1 D), ORAL; SEE IMAGE
     Route: 048
     Dates: start: 20061201
  8. XYREM [Suspect]
     Indication: SLEEP DISORDER
     Dosage: 3 GM (1.5 GM, 2 IN 1 D), ORAL; SEE IMAGE
     Route: 048
     Dates: start: 20061201

REACTIONS (1)
  - RESPIRATORY ARREST [None]
